FAERS Safety Report 13688005 (Version 3)
Quarter: 2017Q4

REPORT INFORMATION
  Report Type: Report from Study
  Country: None (occurrence: CA)
  Receive Date: 20170626
  Receipt Date: 20171018
  Transmission Date: 20180320
  Serious: Yes (Hospitalization)
  Sender: FDA-Public Use
  Company Number: CA-ABBVIE-17K-028-2012703-00

PATIENT
  Age: 50 Year
  Sex: Female

DRUGS (1)
  1. HUMIRA [Suspect]
     Active Substance: ADALIMUMAB
     Indication: RHEUMATOID ARTHRITIS
     Route: 058
     Dates: start: 20170424, end: 20170703

REACTIONS (14)
  - Dizziness [Recovered/Resolved]
  - Anxiety [Recovering/Resolving]
  - Headache [Recovering/Resolving]
  - Vomiting [Recovered/Resolved]
  - Tension headache [Recovered/Resolved]
  - Blood glucose fluctuation [Recovering/Resolving]
  - Diabetes mellitus inadequate control [Recovering/Resolving]
  - Dehydration [Unknown]
  - Tinnitus [Not Recovered/Not Resolved]
  - Blood glucose increased [Unknown]
  - Nausea [Recovered/Resolved]
  - Tension headache [Recovering/Resolving]
  - Asthenia [Recovering/Resolving]
  - Hypertension [Not Recovered/Not Resolved]

NARRATIVE: CASE EVENT DATE: 2017
